FAERS Safety Report 12993404 (Version 1)
Quarter: 2016Q4

REPORT INFORMATION
  Report Type: Spontaneous
  Country: US (occurrence: US)
  Receive Date: 20161201
  Receipt Date: 20161201
  Transmission Date: 20170207
  Serious: Yes (Life-Threatening)
  Sender: FDA-Public Use
  Company Number: None

PATIENT
  Age: 77 Year
  Sex: Male
  Weight: 106.6 kg

DRUGS (5)
  1. METOPROLOL. [Concomitant]
     Active Substance: METOPROLOL
  2. LOW DOSE ASPIRIN [Concomitant]
     Active Substance: ASPIRIN
  3. TESTOSTERONE CYPIONATE INJECTION, USP [Suspect]
     Active Substance: TESTOSTERONE CYPIONATE
     Indication: BLOOD TESTOSTERONE DECREASED
     Dosage: TESTOSTERONE CYPIONATE INJECTION, BI-WEEKLY - 1 ML ORIGINAL REDUCED TO 3/4 ML
  4. RIVAROXABAN [Concomitant]
     Active Substance: RIVAROXABAN
  5. BACTRIM [Concomitant]
     Active Substance: SULFAMETHOXAZOLE\TRIMETHOPRIM

REACTIONS (4)
  - Cellulitis [None]
  - Cardiac disorder [None]
  - Blood iron increased [None]
  - Atrial fibrillation [None]

NARRATIVE: CASE EVENT DATE: 20160819
